FAERS Safety Report 16011745 (Version 1)
Quarter: 2019Q1

REPORT INFORMATION
  Report Type: Spontaneous
  Country: US (occurrence: US)
  Receive Date: 20190227
  Receipt Date: 20190227
  Transmission Date: 20190418
  Serious: Yes (Other)
  Sender: FDA-Public Use
  Company Number: US-PFIZER INC-2019083763

PATIENT
  Age: 42 Year
  Sex: Female
  Weight: 113.3 kg

DRUGS (6)
  1. ENBREL [Concomitant]
     Active Substance: ETANERCEPT
  2. MEDROL [Suspect]
     Active Substance: METHYLPREDNISOLONE
     Dosage: UNK
     Route: 048
  3. CELEBREX [Concomitant]
     Active Substance: CELECOXIB
  4. GABAPENTIN. [Concomitant]
     Active Substance: GABAPENTIN
  5. TIZANIDINE. [Concomitant]
     Active Substance: TIZANIDINE
  6. CORTISOL [CORTISONE ACETATE] [Concomitant]

REACTIONS (9)
  - Bone pain [Unknown]
  - Eye irritation [Unknown]
  - Seizure [Unknown]
  - Vision blurred [Unknown]
  - Pain [Unknown]
  - Muscular weakness [Unknown]
  - Neck injury [Unknown]
  - Exostosis [Unknown]
  - Connective tissue disorder [Unknown]

NARRATIVE: CASE EVENT DATE: 2018
